FAERS Safety Report 4594053-8 (Version None)
Quarter: 2005Q1

REPORT INFORMATION
  Report Type: 
  Country: None (occurrence: None)
  Receive Date: 20050301
  Receipt Date: 20050218
  Transmission Date: 20050727
  Serious: Yes (Hospitalization)
  Sender: FDA-Public Use
  Company Number: US-MERCK-0502USA02403

PATIENT
  Age: 66 Year
  Sex: Female

DRUGS (12)
  1. VIOXX [Suspect]
     Indication: BACK PAIN
     Route: 048
     Dates: start: 20020801, end: 20021101
  2. GLUCOPHAGE [Concomitant]
     Route: 065
  3. GLUCOTROL XL [Concomitant]
     Route: 065
  4. ACTOS [Concomitant]
     Route: 065
  5. PRECOSE [Concomitant]
     Route: 065
  6. COZAAR [Concomitant]
     Route: 065
  7. LIPITOR [Concomitant]
     Route: 065
  8. ECOTRIN [Concomitant]
     Route: 065
  9. LOPRESSOR [Concomitant]
     Route: 065
  10. HUMULIN 70/30 [Concomitant]
     Route: 065
  11. XANAX [Concomitant]
     Route: 065
  12. PEPCID AC [Concomitant]
     Route: 065

REACTIONS (17)
  - ANOREXIA [None]
  - ARTERIAL OCCLUSIVE DISEASE [None]
  - BAND NEUTROPHIL PERCENTAGE INCREASED [None]
  - BLOOD CULTURE POSITIVE [None]
  - BLOOD GLUCOSE INCREASED [None]
  - CHEST DISCOMFORT [None]
  - CHEST PAIN [None]
  - CREPITATIONS [None]
  - DYSPNOEA [None]
  - ESCHERICHIA INFECTION [None]
  - GASTROOESOPHAGEAL REFLUX DISEASE [None]
  - HAEMATOCRIT DECREASED [None]
  - HAEMOGLOBIN DECREASED [None]
  - LYMPHOCYTE PERCENTAGE DECREASED [None]
  - NAUSEA [None]
  - PITTING OEDEMA [None]
  - PYELONEPHRITIS [None]
